FAERS Safety Report 20669847 (Version 1)
Quarter: 2022Q2

REPORT INFORMATION
  Report Type: Spontaneous
  Country: US (occurrence: US)
  Receive Date: 20220404
  Receipt Date: 20220404
  Transmission Date: 20220721
  Serious: No
  Sender: FDA-Public Use
  Company Number: US-BRISTOL-MYERS SQUIBB COMPANY-2022-014454

PATIENT
  Age: 83 Year
  Sex: Male
  Weight: 78.93 kg

DRUGS (16)
  1. ELIQUIS [Suspect]
     Active Substance: APIXABAN
     Indication: Blood pressure measurement
  2. VYNDAMAX [Suspect]
     Active Substance: TAFAMIDIS
     Indication: Cerebrovascular accident prophylaxis
  3. FERROUS SULFATE [Concomitant]
     Active Substance: FERROUS SULFATE
     Indication: Blood iron
  4. VITAMINS [Concomitant]
     Active Substance: VITAMINS
     Indication: Glucose tolerance impaired
     Route: 065
  5. LISINOPRIL [Concomitant]
     Active Substance: LISINOPRIL
     Indication: Blood pressure measurement
  6. LEVOTHYROXINE [Concomitant]
     Active Substance: LEVOTHYROXINE
     Indication: Thyroid disorder
  7. CARVEDILOL [Concomitant]
     Active Substance: CARVEDILOL
     Indication: Product used for unknown indication
  8. ALLOPURINOL [Concomitant]
     Active Substance: ALLOPURINOL
     Indication: Gout
  9. ATORVASTATIN [Concomitant]
     Active Substance: ATORVASTATIN
     Indication: Blood cholesterol
  10. FUROSEMIDE [Concomitant]
     Active Substance: FUROSEMIDE
     Indication: Blood cholesterol
  11. METFORMIN [Concomitant]
     Active Substance: METFORMIN HYDROCHLORIDE
     Indication: Glucose tolerance impaired
  12. TAMSULOSIN [Concomitant]
     Active Substance: TAMSULOSIN
     Indication: Glucose tolerance impaired
  13. MINERALS\VITAMINS [Concomitant]
     Active Substance: MINERALS\VITAMINS
     Indication: Glucose tolerance impaired
  14. MINERALS\VITAMINS [Concomitant]
     Active Substance: MINERALS\VITAMINS
     Indication: Eye disorder
  15. FLAX SEED [Concomitant]
     Active Substance: FLAX SEED
     Indication: Glucose tolerance impaired
  16. MIRALAX [Concomitant]
     Active Substance: POLYETHYLENE GLYCOL 3350
     Indication: Glucose tolerance impaired

REACTIONS (3)
  - Hypoacusis [Unknown]
  - Body height decreased [Unknown]
  - Intentional product use issue [Unknown]
